FAERS Safety Report 4903411-0 (Version None)
Quarter: 2006Q1

REPORT INFORMATION
  Report Type: 
  Country: None (occurrence: None)
  Receive Date: 20060203
  Receipt Date: 20060124
  Transmission Date: 20060701
  Serious: Yes (Hospitalization)
  Sender: FDA-Public Use
  Company Number: 2005169601

PATIENT
  Age: 30 Year
  Sex: Female

DRUGS (3)
  1. SULFASALAZINE [Suspect]
     Indication: RHEUMATOID ARTHRITIS
     Dosage: 500 MG, ORAL
     Route: 048
  2. CENTYL MITE W/POTASSIUM CHLORIDE (BENDROFLUMETHIAZIDE, POTASSIUM CHLOR [Concomitant]
  3. MILVANE (ETHINYLESTRADIOL, GESTODENE) [Concomitant]

REACTIONS (5)
  - BIOPSY LYMPH GLAND ABNORMAL [None]
  - ERYTHEMA MULTIFORME [None]
  - LYMPHADENOPATHY [None]
  - PYREXIA [None]
  - RASH [None]
